FAERS Safety Report 10049800 (Version 3)
Quarter: 2015Q3

REPORT INFORMATION
  Report Type: Report from Study
  Country: DE (occurrence: DE)
  Receive Date: 20140401
  Receipt Date: 20150930
  Transmission Date: 20151125
  Serious: No
  Sender: FDA-Public Use
  Company Number: DE-BEH-2014041463

PATIENT
  Age: 32 Year
  Sex: Female
  Weight: 64 kg

DRUGS (26)
  1. PRIVIGEN [Suspect]
     Active Substance: HUMAN IMMUNOGLOBULIN G
     Dosage: INFUSION RATE: MIN. 3 ML/MIN, INFUSION RATE MAX. 5 ML/MIN
     Route: 042
     Dates: start: 20100217, end: 20100217
  2. PRIVIGEN [Suspect]
     Active Substance: HUMAN IMMUNOGLOBULIN G
     Dosage: INFUSION RATE: MIN. 3 ML/MIN, INFUSION RATE MAX. 4 ML/MIN
     Route: 042
     Dates: start: 20100224, end: 20100224
  3. PRIVIGEN [Suspect]
     Active Substance: HUMAN IMMUNOGLOBULIN G
     Dosage: INFUSION RATE: MIN. 3 ML/MIN, INFUSION RATE MAX. 4 ML/MIN
     Route: 042
     Dates: start: 20100419, end: 20100419
  4. FIBROGAMMIN [Suspect]
     Active Substance: FACTOR XIII CONCENTRATE (HUMAN)
     Route: 042
     Dates: start: 20100822, end: 20100822
  5. PRIVIGEN [Suspect]
     Active Substance: HUMAN IMMUNOGLOBULIN G
     Dosage: INFUSION RATE: MIN. 1.7 ML/MIN, INFUSION RATE MAX. 4.3 ML/MIN
     Route: 042
     Dates: start: 20100201, end: 20100201
  6. PRIVIGEN [Suspect]
     Active Substance: HUMAN IMMUNOGLOBULIN G
     Dosage: INFUSION RATE: MIN. 3 ML/MIN, INFUSION RATE MAX. 5 ML/MIN
     Route: 042
     Dates: start: 20100217, end: 20100217
  7. PRIVIGEN [Suspect]
     Active Substance: HUMAN IMMUNOGLOBULIN G
     Dosage: INFUSION RATE: MIN. 3 ML/MIN, INFUSION RATE MAX. 4 ML/MIN
     Route: 042
     Dates: start: 20100224, end: 20100224
  8. PRIVIGEN [Suspect]
     Active Substance: HUMAN IMMUNOGLOBULIN G
     Dosage: INFUSION RATE: MIN. 3 ML/MIN, INFUSION RATE MAX. 4 ML/MIN
     Route: 042
     Dates: start: 20100224, end: 20100224
  9. PRIVIGEN [Suspect]
     Active Substance: HUMAN IMMUNOGLOBULIN G
     Dosage: INFUSION RATE: MIN. 3 ML/MIN, INFUSION RATE MAX. 4 ML/MIN
     Route: 042
     Dates: start: 20100317, end: 20100317
  10. PRIVIGEN [Suspect]
     Active Substance: HUMAN IMMUNOGLOBULIN G
     Dosage: INFUSION RATE: MIN. 3 ML/MIN, INFUSION RATE MAX. 4 ML/MIN
     Route: 042
     Dates: start: 20100317, end: 20100317
  11. PRIVIGEN [Suspect]
     Active Substance: HUMAN IMMUNOGLOBULIN G
     Dosage: INFUSION RATE: MIN. 3 ML/MIN, INFUSION RATE MAX. 4 ML/MIN
     Route: 042
     Dates: start: 20100419, end: 20100419
  12. HAEMATE P [Suspect]
     Active Substance: ANTIHEMOPHILIC FACTOR HUMAN
     Indication: VON WILLEBRAND^S DISEASE
     Route: 042
     Dates: start: 20100128
  13. HAEMATE P [Suspect]
     Active Substance: ANTIHEMOPHILIC FACTOR HUMAN
     Route: 042
     Dates: start: 20100419, end: 20100419
  14. PRIVIGEN [Suspect]
     Active Substance: HUMAN IMMUNOGLOBULIN G
     Indication: IMMUNODEFICIENCY COMMON VARIABLE
     Dosage: INFUSION RATE: MIN. 3 ML/MIN, INFUSION RATE MAX. 5 ML/MIN
     Route: 042
     Dates: start: 20100217, end: 20100217
  15. PRIVIGEN [Suspect]
     Active Substance: HUMAN IMMUNOGLOBULIN G
     Dosage: INFUSION RATE: MIN. 3 ML/MIN, INFUSION RATE MAX. 4 ML/MIN
     Route: 042
     Dates: start: 20100317, end: 20100317
  16. HAEMATE P [Suspect]
     Active Substance: ANTIHEMOPHILIC FACTOR HUMAN
     Route: 042
  17. HAEMATE P [Suspect]
     Active Substance: ANTIHEMOPHILIC FACTOR HUMAN
     Route: 042
     Dates: start: 20100217, end: 20100217
  18. PRIVIGEN [Suspect]
     Active Substance: HUMAN IMMUNOGLOBULIN G
     Dosage: INFUSION RATE: MIN. 3 ML/MIN, INFUSION RATE MAX. 4 ML/MIN
     Route: 042
     Dates: start: 20100305, end: 20100305
  19. HAEMATE P [Suspect]
     Active Substance: ANTIHEMOPHILIC FACTOR HUMAN
     Route: 042
     Dates: start: 20100305, end: 20100305
  20. HAEMATE P [Suspect]
     Active Substance: ANTIHEMOPHILIC FACTOR HUMAN
     Route: 042
     Dates: start: 20100317, end: 20100317
  21. PRIVIGEN [Suspect]
     Active Substance: HUMAN IMMUNOGLOBULIN G
     Dosage: INFUSION RATE: MIN. 3 ML/MIN, INFUSION RATE MAX. 4 ML/MIN
     Route: 042
     Dates: start: 20100305, end: 20100305
  22. HAEMATE P [Suspect]
     Active Substance: ANTIHEMOPHILIC FACTOR HUMAN
     Route: 042
     Dates: start: 20100224, end: 20100224
  23. FIBROGAMMIN [Suspect]
     Active Substance: FACTOR XIII CONCENTRATE (HUMAN)
     Indication: FACTOR XIII DEFICIENCY
     Route: 042
     Dates: start: 20100707, end: 20100707
  24. PRIVIGEN [Suspect]
     Active Substance: HUMAN IMMUNOGLOBULIN G
     Dosage: INFUSION RATE: MIN. 3 ML/MIN, INFUSION RATE MAX. 4 ML/MIN
     Route: 042
     Dates: start: 20100305, end: 20100305
  25. PRIVIGEN [Suspect]
     Active Substance: HUMAN IMMUNOGLOBULIN G
     Dosage: INFUSION RATE: MIN. 3 ML/MIN, INFUSION RATE MAX. 4 ML/MIN
     Route: 042
     Dates: start: 20100419, end: 20100419
  26. HAEMATE P [Suspect]
     Active Substance: ANTIHEMOPHILIC FACTOR HUMAN
     Route: 042
     Dates: end: 20100927

REACTIONS (1)
  - Exposure during pregnancy [Unknown]

NARRATIVE: CASE EVENT DATE: 20100201
